FAERS Safety Report 15856652 (Version 2)
Quarter: 2019Q1

REPORT INFORMATION
  Report Type: Spontaneous
  Country: FR (occurrence: FR)
  Receive Date: 20190123
  Receipt Date: 20190222
  Transmission Date: 20190417
  Serious: Yes (Hospitalization)
  Sender: FDA-Public Use
  Company Number: FR-AUROBINDO-AUR-APL-2019-002038

PATIENT

DRUGS (3)
  1. CETIRIZINE ARROW LAB 10 MG FILM COATED TABLETS [Suspect]
     Active Substance: CETIRIZINE HYDROCHLORIDE
     Indication: ANGIOEDEMA
     Dosage: 1 TABLET DAILY IN MORNING, THEN 4 TABLETS DAILY
     Route: 048
     Dates: start: 20181217
  2. HYDROXYZINE DIVISIBLE ARROW 25 MG FILM-COATED TABLET [Suspect]
     Active Substance: HYDROXYZINE HYDROCHLORIDE
     Indication: ANGIOEDEMA
     Dosage: 25 MILLIGRAM, ONCE A DAY IN EVENING
     Route: 048
     Dates: start: 20181217, end: 20181220
  3. DEXCHLORPHENIRAMINE [Suspect]
     Active Substance: DEXCHLORPHENIRAMINE
     Indication: ANGIOEDEMA
     Dosage: 3 DOSAGE FORM, ONCE A DAY (3 TABLETS DAILY)
     Route: 048
     Dates: start: 20181217, end: 20181220

REACTIONS (2)
  - Somnolence [Recovered/Resolved]
  - Malaise [Recovered/Resolved]

NARRATIVE: CASE EVENT DATE: 20181219
